FAERS Safety Report 10081870 (Version 1)
Quarter: 2014Q2

REPORT INFORMATION
  Report Type: Spontaneous
  Country: US (occurrence: None)
  Receive Date: 20140414
  Receipt Date: 20140414
  Transmission Date: 20141212
  Serious: Yes (Hospitalization)
  Sender: FDA-Public Use
  Company Number: SYM-2014-19568

PATIENT
  Age: 66 Year
  Sex: Female

DRUGS (1)
  1. XENAZINE [Suspect]
     Indication: COORDINATION ABNORMAL
     Route: 048
     Dates: start: 201102

REACTIONS (1)
  - Cellulitis [None]
